FAERS Safety Report 5850107-7 (Version None)
Quarter: 2008Q3

REPORT INFORMATION
  Report Type: 
  Country: None (occurrence: None)
  Receive Date: 20080819
  Receipt Date: 20080812
  Transmission Date: 20090109
  Serious: No
  Sender: FDA-Public Use
  Company Number: US-BOEHRINGER INGELHEIM GMBH, GERMANY-2008-BP-12679BP

PATIENT
  Age: 62 Year
  Sex: Female

DRUGS (8)
  1. ZANTAC 75 [Suspect]
     Indication: GASTROOESOPHAGEAL REFLUX DISEASE
     Route: 048
     Dates: start: 20080310, end: 20080713
  2. ZANTAC 150 [Suspect]
     Indication: GASTROOESOPHAGEAL REFLUX DISEASE
     Route: 048
     Dates: start: 20080713
  3. SIMVASTATIN [Concomitant]
     Indication: BLOOD CHOLESTEROL INCREASED
  4. FEXOFENADINE [Concomitant]
     Indication: HYPERSENSITIVITY
  5. NASONEX [Concomitant]
     Indication: HYPERSENSITIVITY
  6. CALTRATE [Concomitant]
     Indication: RESORPTION BONE INCREASED
  7. M.V.I. [Concomitant]
  8. ASPIRIN [Concomitant]

REACTIONS (7)
  - COUGH [None]
  - DIZZINESS [None]
  - HYPERHIDROSIS [None]
  - NAUSEA [None]
  - PALPITATIONS [None]
  - SENSATION OF FOREIGN BODY [None]
  - THROAT IRRITATION [None]
